FAERS Safety Report 7331326-X (Version None)
Quarter: 2011Q1

REPORT INFORMATION
  Report Type: 
  Country: None (occurrence: None)
  Receive Date: 20110228
  Receipt Date: 20110228
  Transmission Date: 20110831
  Serious: Yes (Disabling, Other)
  Sender: FDA-Public Use
  Company Number: None

PATIENT
  Age: 42 Year
  Sex: Female
  Weight: 55 kg

DRUGS (1)
  1. HUMIRA [Suspect]
     Indication: RHEUMATOID ARTHRITIS
     Dosage: .40MG/0.8ML 2X MONTH INJECTION

REACTIONS (3)
  - MULTIPLE SCLEROSIS [None]
  - CENTRAL NERVOUS SYSTEM LESION [None]
  - VISION BLURRED [None]
